FAERS Safety Report 8967031 (Version 5)
Quarter: 2013Q3

REPORT INFORMATION
  Report Type: Report from Study
  Country: US (occurrence: US)
  Receive Date: 20121217
  Receipt Date: 20130912
  Transmission Date: 20140515
  Serious: Yes (Hospitalization)
  Sender: FDA-Public Use
  Company Number: US-ACTELION-A-NJ2012-76290

PATIENT
  Age: 62 Year
  Sex: Female

DRUGS (4)
  1. VENTAVIS [Suspect]
     Indication: PULMONARY ARTERIAL HYPERTENSION
     Dosage: UNK
     Route: 055
     Dates: start: 2000
  2. VENTAVIS [Suspect]
     Dosage: UNK
     Route: 055
     Dates: start: 20130907
  3. LETAIRIS [Concomitant]
  4. SILDENAFIL [Concomitant]

REACTIONS (5)
  - Hernia [Unknown]
  - Fluid retention [Unknown]
  - Oedema [Unknown]
  - Fluid overload [Recovered/Resolved]
  - Malaise [Unknown]
